FAERS Safety Report 5049254-1 (Version None)
Quarter: 2006Q3

REPORT INFORMATION
  Report Type: 
  Country: None (occurrence: None)
  Receive Date: 20060706
  Receipt Date: 20060629
  Transmission Date: 20061208
  Serious: Yes (Hospitalization)
  Sender: FDA-Public Use
  Company Number: EM2005-0069

PATIENT
  Age: 16 Month
  Sex: Female

DRUGS (3)
  1. TOBI [Suspect]
     Indication: LUNG INFECTION PSEUDOMONAL
     Dosage: 300 MG, BID; INHALATION, REGIMEN 2
     Route: 055
     Dates: start: 20041103, end: 20041129
  2. TOBI [Suspect]
     Indication: LUNG INFECTION PSEUDOMONAL
     Dosage: 300 MG, BID; INHALATION, REGIMEN 2
     Route: 055
     Dates: start: 20050107, end: 20050121
  3. ELOBACT (CEFUROXIME AXETIL) [Concomitant]

REACTIONS (3)
  - DISEASE RECURRENCE [None]
  - DRUG INEFFECTIVE [None]
  - PSEUDOMONAS INFECTION [None]
